FAERS Safety Report 10186548 (Version 1)
Quarter: 2014Q2

REPORT INFORMATION
  Report Type: Report from Study
  Country: MX (occurrence: MX)
  Receive Date: 20140521
  Receipt Date: 20140521
  Transmission Date: 20141212
  Serious: Yes (Hospitalization, Other)
  Sender: FDA-Public Use
  Company Number: PHHY2014MX060495

PATIENT
  Age: 64 Year
  Sex: Female

DRUGS (1)
  1. ACLASTA [Suspect]
     Indication: OSTEOPOROSIS
     Dosage: 1 DF, ANNUALLY
     Route: 042

REACTIONS (5)
  - Lower limb fracture [Recovered/Resolved]
  - Intervertebral disc protrusion [Recovered/Resolved]
  - Feeling abnormal [Recovered/Resolved]
  - Discomfort [Not Recovered/Not Resolved]
  - Bone pain [Not Recovered/Not Resolved]
